FAERS Safety Report 9693379 (Version 2)
Quarter: 2013Q4

REPORT INFORMATION
  Report Type: Spontaneous
  Country: US (occurrence: US)
  Receive Date: 20131118
  Receipt Date: 20131121
  Transmission Date: 20140711
  Serious: Yes (Hospitalization, Other)
  Sender: FDA-Public Use
  Company Number: US-GILEAD-2013-0087733

PATIENT
  Age: 53 Year
  Sex: Female

DRUGS (2)
  1. LETAIRIS [Suspect]
     Indication: PULMONARY ARTERIAL HYPERTENSION
     Dosage: 2.5 MG, QD
     Dates: start: 20121205
  2. LETAIRIS [Suspect]
     Indication: ATRIAL SEPTAL DEFECT

REACTIONS (1)
  - Atrial fibrillation [Recovered/Resolved]
